FAERS Safety Report 13915201 (Version 1)
Quarter: 2017Q3

REPORT INFORMATION
  Report Type: Spontaneous
  Country: US (occurrence: US)
  Receive Date: 20170828
  Receipt Date: 20170828
  Transmission Date: 20171127
  Serious: Yes (Hospitalization)
  Sender: FDA-Public Use
  Company Number: None

PATIENT
  Age: 21 Year
  Sex: Female

DRUGS (5)
  1. TOBRAMYCIN 300MG/5ML NEB AMNEAL [Suspect]
     Active Substance: TOBRAMYCIN
     Indication: CYSTIC FIBROSIS
     Route: 055
     Dates: start: 20170801
  2. PULMOZYME [Concomitant]
     Active Substance: DORNASE ALFA
  3. LINEZOLID. [Concomitant]
     Active Substance: LINEZOLID
  4. SERTRALINE [Concomitant]
     Active Substance: SERTRALINE HYDROCHLORIDE
  5. ADVAIR HFA [Concomitant]
     Active Substance: FLUTICASONE PROPIONATE\SALMETEROL XINAFOATE

REACTIONS (2)
  - Respiratory disorder [None]
  - Hospitalisation [None]

NARRATIVE: CASE EVENT DATE: 20170826
